FAERS Safety Report 4344061-7 (Version None)
Quarter: 2004Q2

REPORT INFORMATION
  Report Type: 
  Country: None (occurrence: None)
  Receive Date: 20040422
  Receipt Date: 20040420
  Transmission Date: 20050107
  Serious: Yes (Other)
  Sender: FDA-Public Use
  Company Number: US-GLAXOSMITHKLINE-A0507658A

PATIENT
  Sex: Male

DRUGS (1)
  1. PAXIL CR [Suspect]
     Dosage: 12.5MG PER DAY
     Route: 048

REACTIONS (2)
  - HALLUCINATION [None]
  - SCHIZOPHRENIA [None]
